FAERS Safety Report 9103125 (Version 1)
Quarter: 2013Q1

REPORT INFORMATION
  Report Type: Spontaneous
  Country: US (occurrence: US)
  Receive Date: 20130219
  Receipt Date: 20130219
  Transmission Date: 20140127
  Serious: Yes (Life-Threatening, Other)
  Sender: FDA-Public Use
  Company Number: PHEH2013US003955

PATIENT
  Sex: Female

DRUGS (2)
  1. TOBI [Suspect]
     Dosage: 300 ML,
     Dates: start: 20121129
  2. AMBRAL [Concomitant]

REACTIONS (2)
  - Feeling abnormal [Unknown]
  - Lung disorder [Unknown]
